FAERS Safety Report 19164278 (Version 1)
Quarter: 2021Q2

REPORT INFORMATION
  Report Type: Other
  Country: US (occurrence: US)
  Receive Date: 20210421
  Receipt Date: 20210421
  Transmission Date: 20210717
  Serious: Yes (Other)
  Sender: FDA-Public Use
  Company Number: US-ALKERMES INC.-ALK-2020-001922

PATIENT
  Sex: Female
  Weight: 58.05 kg

DRUGS (2)
  1. VIVITROL [Suspect]
     Active Substance: NALTREXONE
     Dosage: 380 MILLIGRAM, QMO
     Route: 030
     Dates: start: 201901, end: 201911
  2. VIVITROL [Suspect]
     Active Substance: NALTREXONE
     Indication: DRUG DEPENDENCE
     Dosage: 380 MILLIGRAM, QMO
     Route: 030
     Dates: start: 20200203

REACTIONS (11)
  - Psychomotor hyperactivity [Unknown]
  - Drug withdrawal syndrome [Unknown]
  - Fatigue [Unknown]
  - Victim of crime [Unknown]
  - Alcohol abuse [Unknown]
  - Diarrhoea [Unknown]
  - Hyperhidrosis [Unknown]
  - Insomnia [Unknown]
  - Weight decreased [Unknown]
  - Jaw fracture [Unknown]
  - Vomiting [Unknown]

NARRATIVE: CASE EVENT DATE: 2019
